FAERS Safety Report 6762884-1 (Version None)
Quarter: 2010Q2

REPORT INFORMATION
  Report Type: 
  Country: None (occurrence: None)
  Receive Date: 20100608
  Receipt Date: 20100608
  Transmission Date: 20101027
  Serious: Yes (Life-Threatening, Hospitalization)
  Sender: FDA-Public Use
  Company Number: None

PATIENT
  Sex: Male
  Weight: 104.8 kg

DRUGS (1)
  1. KEFLEX [Suspect]
     Indication: SKIN ULCER
     Dates: start: 20100227, end: 20100313

REACTIONS (5)
  - CELLULITIS [None]
  - DRUG HYPERSENSITIVITY [None]
  - NO REACTION ON PREVIOUS EXPOSURE TO DRUG [None]
  - OSTEOMYELITIS [None]
  - STEVENS-JOHNSON SYNDROME [None]
